FAERS Safety Report 8573106-3 (Version None)
Quarter: 2012Q3

REPORT INFORMATION
  Report Type: 
  Country: None (occurrence: None)
  Receive Date: 20120806
  Receipt Date: 20120726
  Transmission Date: 20120928
  Serious: Yes (Hospitalization)
  Sender: FDA-Public Use
  Company Number: AU-ACTELION-A-CH2012-69290

PATIENT
  Age: 88 Year
  Sex: Female

DRUGS (7)
  1. CALCIUM CARBONATE [Concomitant]
  2. TRACLEER [Suspect]
     Indication: PULMONARY ARTERIAL HYPERTENSION
     Dosage: 62.5 MG, BID
     Route: 048
     Dates: start: 20110812, end: 20120720
  3. LANTUS [Concomitant]
  4. ATORVASTATIN [Concomitant]
  5. CLOPIDOGREL [Concomitant]
  6. CHOLECALCIFEROL [Concomitant]
  7. ASPIRIN [Concomitant]

REACTIONS (9)
  - CONDITION AGGRAVATED [None]
  - CHEST PAIN [None]
  - PNEUMONIA [None]
  - HYPOXIA [None]
  - ACUTE MYOCARDIAL INFARCTION [None]
  - DYSPNOEA [None]
  - RALES [None]
  - ACUTE PULMONARY OEDEMA [None]
  - EXERCISE TOLERANCE DECREASED [None]
